FAERS Safety Report 10070532 (Version 1)
Quarter: 2014Q2

REPORT INFORMATION
  Report Type: Spontaneous
  Country: US (occurrence: None)
  Receive Date: 20140409
  Receipt Date: 20140409
  Transmission Date: 20141212
  Serious: Yes (Other)
  Sender: FDA-Public Use
  Company Number: None

PATIENT
  Age: 35 Year
  Sex: Female
  Weight: 74.84 kg

DRUGS (1)
  1. BUPRENORPHINE/NALOXONE [Suspect]
     Indication: DRUG DEPENDENCE
     Dosage: BUPRENORPHINE 8MG - NALOXONE 2MG TABLETS (ZUBSOV) 3XDAY SUBLINGUAL
     Route: 060
     Dates: start: 201311

REACTIONS (4)
  - Oral discomfort [None]
  - Paraesthesia oral [None]
  - Nausea [None]
  - Sedation [None]
